FAERS Safety Report 6827342-4 (Version None)
Quarter: 2010Q3

REPORT INFORMATION
  Report Type: 
  Country: None (occurrence: None)
  Receive Date: 20100709
  Receipt Date: 20070112
  Transmission Date: 20110219
  Serious: No
  Sender: FDA-Public Use
  Company Number: US-PFIZER INC-2007004376

PATIENT
  Sex: Male
  Weight: 113.4 kg

DRUGS (2)
  1. CHANTIX [Suspect]
  2. ZANTAC [Concomitant]

REACTIONS (2)
  - INSOMNIA [None]
  - PSYCHOMOTOR HYPERACTIVITY [None]
